FAERS Safety Report 6140049-4 (Version None)
Quarter: 2009Q2

REPORT INFORMATION
  Report Type: 
  Country: None (occurrence: None)
  Receive Date: 20090401
  Receipt Date: 20090323
  Transmission Date: 20091009
  Serious: Yes (Hospitalization, Other)
  Sender: FDA-Public Use
  Company Number: PHHY2009FR11219

PATIENT
  Sex: Male

DRUGS (7)
  1. TEGRETOL [Suspect]
     Indication: EPILEPSY
     Dosage: 2 DF, BID
     Dates: end: 20081006
  2. DEPAKENE [Suspect]
     Indication: EPILEPSY
     Dosage: 1250 MG, BID
     Dates: end: 20081007
  3. RYTHMOL [Concomitant]
     Dosage: 900 MG/DAY
  4. TAREG [Concomitant]
     Dosage: 80 MG, QD
  5. KARDEGIC [Concomitant]
     Dosage: UNK
  6. NEXIUM [Concomitant]
     Dosage: UNK
  7. ENOXAPARIN SODIUM [Concomitant]
     Dosage: 60 MG, BID
     Route: 058

REACTIONS (5)
  - ANTICONVULSANT DRUG LEVEL ABOVE THERAPEUTIC [None]
  - ASTHENIA [None]
  - BALANCE DISORDER [None]
  - ENCEPHALOPATHY [None]
  - HEMIPARESIS [None]
